FAERS Safety Report 7996819-0 (Version None)
Quarter: 2011Q4

REPORT INFORMATION
  Report Type: 
  Country: None (occurrence: None)
  Receive Date: 20111221
  Receipt Date: 20111212
  Transmission Date: 20120403
  Serious: Yes (Other)
  Sender: FDA-Public Use
  Company Number: US-JNJFOC-20111110740

PATIENT
  Age: 82 Year
  Sex: Female
  Weight: 68.04 kg

DRUGS (4)
  1. IMODIUM MULTI-SYMPTOM RELIEF [Suspect]
     Route: 048
     Dates: start: 20111122, end: 20111122
  2. HIGH BLOOD PRESSURE MEDICATION NOS [Concomitant]
     Indication: HYPERTENSION
     Route: 065
  3. IMODIUM MULTI-SYMPTOM RELIEF [Suspect]
     Indication: DIARRHOEA
     Route: 048
  4. MEDICATION FOR DIABETES [Concomitant]
     Indication: DIABETES MELLITUS
     Route: 065

REACTIONS (7)
  - PRODUCT COATING ISSUE [None]
  - ANXIETY [None]
  - PRODUCT PACKAGING ISSUE [None]
  - CHOKING [None]
  - DYSPNOEA [None]
  - OROPHARYNGEAL PAIN [None]
  - DYSPHAGIA [None]
